FAERS Safety Report 13999079 (Version 1)
Quarter: 2017Q3

REPORT INFORMATION
  Report Type: Spontaneous
  Country: CA (occurrence: CA)
  Receive Date: 20170922
  Receipt Date: 20170922
  Transmission Date: 20171128
  Serious: Yes (Death)
  Sender: FDA-Public Use
  Company Number: CA-TEVA-807788ACC

PATIENT
  Age: 59 Year
  Sex: Female

DRUGS (6)
  1. ALCOHOL. [Concomitant]
     Active Substance: ALCOHOL
  2. CLOZAPINE. [Concomitant]
     Active Substance: CLOZAPINE
  3. QUETIAPINE. [Concomitant]
     Active Substance: QUETIAPINE
  4. GABAPENTIN. [Concomitant]
     Active Substance: GABAPENTIN
  5. VALPROIC ACID. [Suspect]
     Active Substance: VALPROIC ACID
     Indication: PRODUCT USED FOR UNKNOWN INDICATION
     Route: 065
  6. CLOZAPINE. [Suspect]
     Active Substance: CLOZAPINE
     Indication: PRODUCT USED FOR UNKNOWN INDICATION
     Route: 065

REACTIONS (11)
  - Arrhythmia [Fatal]
  - Hypothermia [Fatal]
  - Cardiac failure acute [Fatal]
  - Malaise [Fatal]
  - Circumstance or information capable of leading to medication error [Fatal]
  - Fatigue [Fatal]
  - Dizziness [Fatal]
  - Medication error [Fatal]
  - Metabolic disorder [Fatal]
  - Arteriosclerosis coronary artery [Fatal]
  - Drug dose omission [Fatal]
